FAERS Safety Report 13663663 (Version 1)
Quarter: 2017Q2

REPORT INFORMATION
  Report Type: Spontaneous
  Country: US (occurrence: US)
  Receive Date: 20170616
  Receipt Date: 20170616
  Transmission Date: 20170830
  Serious: No
  Sender: FDA-Public Use
  Company Number: None

PATIENT
  Age: 45 Year
  Sex: Male

DRUGS (1)
  1. GILENYA [Suspect]
     Active Substance: FINGOLIMOD HYDROCHLORIDE
     Indication: MULTIPLE SCLEROSIS
     Dosage: TAKE 1 CAPSULE (0.5MG TOTAL) DAILY BY MOUTH
     Route: 048
     Dates: start: 20160301

REACTIONS (2)
  - Product quality issue [None]
  - Visual impairment [None]

NARRATIVE: CASE EVENT DATE: 20170614
